FAERS Safety Report 8779531 (Version 2)
Quarter: 2013Q4

REPORT INFORMATION
  Report Type: Spontaneous
  Country: CH (occurrence: CH)
  Receive Date: 20120912
  Receipt Date: 20131031
  Transmission Date: 20140711
  Serious: Yes (Hospitalization)
  Sender: FDA-Public Use
  Company Number: CH-009507513-1209CHE002463

PATIENT
  Age: 82 Year
  Sex: Female

DRUGS (9)
  1. ZOCOR [Suspect]
     Dosage: 20 MG, QD
     Route: 048
     Dates: start: 199806, end: 199908
  2. MODURETIC [Suspect]
     Dosage: UNK
     Route: 048
     Dates: start: 199806, end: 199905
  3. FLUDEX [Suspect]
     Dosage: 1.5 MG, QD
     Route: 048
     Dates: start: 199906, end: 199908
  4. DILATREND [Suspect]
     Dosage: 6.25 MG, QD
     Route: 048
     Dates: start: 199806, end: 199908
  5. ZYLORIC [Suspect]
     Dosage: UNK
     Route: 048
     Dates: start: 199806, end: 199908
  6. NORVASC [Concomitant]
     Dosage: UNK
     Dates: start: 1998, end: 199908
  7. SINTROM [Concomitant]
     Dosage: 1 MG, QD
     Route: 048
  8. ASPIRIN CARDIO [Concomitant]
     Dosage: 100 MG, QD
     Route: 048
  9. MARCUMAR [Concomitant]

REACTIONS (1)
  - Systemic lupus erythematosus [Recovered/Resolved]
